FAERS Safety Report 14649287 (Version 1)
Quarter: 2018Q1

REPORT INFORMATION
  Report Type: Spontaneous
  Country: CN (occurrence: CN)
  Receive Date: 20180316
  Receipt Date: 20180316
  Transmission Date: 20180509
  Serious: Yes (Hospitalization)
  Sender: FDA-Public Use
  Company Number: CN-009507513-1803CHN005388

PATIENT
  Age: 89 Year
  Sex: Male
  Weight: 70 kg

DRUGS (2)
  1. TIENAM [Suspect]
     Active Substance: CILASTATIN SODIUM\IMIPENEM
     Indication: INFECTION
     Dosage: 0.5 G, ONCE DAILY
     Route: 042
     Dates: start: 20180103, end: 20180103
  2. SODIUM CHLORIDE. [Concomitant]
     Active Substance: SODIUM CHLORIDE
     Dosage: 100 ML, ONCE DAILY
     Route: 042
     Dates: start: 20180103

REACTIONS (3)
  - Halo vision [Unknown]
  - Mental disorder [Unknown]
  - Irritability [Unknown]

NARRATIVE: CASE EVENT DATE: 20180103
